FAERS Safety Report 10008558 (Version 1)
Quarter: 2014Q1

REPORT INFORMATION
  Report Type: Spontaneous
  Country: US (occurrence: None)
  Receive Date: 20140228
  Receipt Date: 20140228
  Transmission Date: 20141002
  Serious: Yes (Other)
  Sender: FDA-Public Use
  Company Number: 225469

PATIENT
  Age: 67 Year
  Sex: Male

DRUGS (1)
  1. PICATO GEL [Suspect]
     Indication: ACTINIC KERATOSIS
     Dosage: 1 TUBE DAILY (1 IN 1 D), DERMAL
     Dates: start: 20131130, end: 20131202

REACTIONS (9)
  - Swollen tear duct [None]
  - Eye irritation [None]
  - Eye pain [None]
  - Eye swelling [None]
  - Application site exfoliation [None]
  - Eye pruritus [None]
  - Accidental exposure to product [None]
  - Drug administered at inappropriate site [None]
  - Incorrect route of drug administration [None]
